FAERS Safety Report 7367082-9 (Version None)
Quarter: 2011Q1

REPORT INFORMATION
  Report Type: 
  Country: None (occurrence: None)
  Receive Date: 20110322
  Receipt Date: 20110318
  Transmission Date: 20110831
  Serious: Yes (Hospitalization, Other)
  Sender: FDA-Public Use
  Company Number: US-AMGEN-USASP2011015115

PATIENT
  Age: 45 Year
  Sex: Male

DRUGS (1)
  1. NPLATE [Suspect]
     Indication: IDIOPATHIC THROMBOCYTOPENIC PURPURA
     Dosage: 6 A?G/KG, QWK
     Dates: start: 20100520

REACTIONS (6)
  - EPISTAXIS [None]
  - VISION BLURRED [None]
  - NEUROPATHY PERIPHERAL [None]
  - DIPLOPIA [None]
  - CEREBROVASCULAR ACCIDENT [None]
  - PLATELET COUNT DECREASED [None]
